FAERS Safety Report 13746614 (Version 1)
Quarter: 2017Q3

REPORT INFORMATION
  Report Type: Spontaneous
  Country: US (occurrence: US)
  Receive Date: 20170712
  Receipt Date: 20170712
  Transmission Date: 20171127
  Serious: Yes (Hospitalization)
  Sender: FDA-Public Use
  Company Number: US-BAYER-2017-131788

PATIENT
  Age: 4 Month
  Sex: Female

DRUGS (5)
  1. ACETYLSALICYLIC ACID({=100 MG) [Suspect]
     Active Substance: ASPIRIN
     Indication: SHUNT THROMBOSIS
  2. HEPARIN [Suspect]
     Active Substance: HEPARIN SODIUM
  3. EPINEPHRINE. [Concomitant]
     Active Substance: EPINEPHRINE
     Dosage: 0.03MCG/KG/H
  4. MILRINONE [Concomitant]
     Active Substance: MILRINONE
     Dosage: 0.3MG/KG/H
  5. NITROPRUSSIDE [Concomitant]
     Active Substance: NITROPRUSSIDE
     Dosage: 2 MCG/KG/MIN

REACTIONS (7)
  - Hyphaema [None]
  - Product use issue [None]
  - Conjunctival haemorrhage [None]
  - Off label use [None]
  - Drug administration error [None]
  - Labelled drug-drug interaction medication error [None]
  - Coagulation time prolonged [None]
